FAERS Safety Report 19816516 (Version 16)
Quarter: 2023Q4

REPORT INFORMATION
  Report Type: Report from Study
  Country: NZ (occurrence: NZ)
  Receive Date: 20210910
  Receipt Date: 20231128
  Transmission Date: 20240110
  Serious: Yes (Life-Threatening, Hospitalization, Other)
  Sender: FDA-Public Use
  Company Number: NZ-BRISTOL-MYERS SQUIBB COMPANY-BMS-2021-090819

PATIENT
  Age: 46 Year
  Sex: Male
  Weight: 80 kg

DRUGS (7)
  1. NIVOLUMAB [Suspect]
     Active Substance: NIVOLUMAB
     Indication: Bladder cancer
     Dosage: PRIOR TO EVENT ONSET, PATIENT RECEIVED MOST RECENT DOSE OF STUDY THERAPY ON 03-SEP-2021?DOSE DELAYED
     Route: 042
     Dates: start: 20210723
  2. CISPLATIN [Suspect]
     Active Substance: CISPLATIN
     Indication: Bladder cancer
     Dosage: PRIOR TO EVENT ONSET, PATIENT RECEIVED MOST RECENT DOSE OF STUDY THERAPY ON 03-SEP-2021?DOSE DELAYED
     Route: 042
     Dates: start: 20210723
  3. GEMCITABINE HYDROCHLORIDE [Suspect]
     Active Substance: GEMCITABINE HYDROCHLORIDE
     Indication: Bladder cancer
     Dosage: PRIOR TO EVENT ONSET, PATIENT RECEIVED MOST RECENT DOSE OF STUDY THERAPY ON 03-SEP-2021?DOSE DELAYED
     Route: 042
     Dates: start: 20210723
  4. ZOPICLONE [Concomitant]
     Active Substance: ZOPICLONE
     Indication: Insomnia
     Route: 048
     Dates: start: 20210812
  5. CYCLIZINE [Concomitant]
     Active Substance: CYCLIZINE
     Indication: Nausea
     Route: 048
     Dates: start: 20210906
  6. CYCLIZINE [Concomitant]
     Active Substance: CYCLIZINE
  7. DOCUSATE SODIUM [Concomitant]
     Active Substance: DOCUSATE SODIUM
     Indication: Constipation
     Dosage: 1 DOSAGE FORM= 2 UNITS NOS
     Route: 048
     Dates: start: 20210819

REACTIONS (1)
  - Diabetic ketoacidosis [Recovered/Resolved with Sequelae]

NARRATIVE: CASE EVENT DATE: 20210907
